FAERS Safety Report 5228141-X (Version None)
Quarter: 2007Q1

REPORT INFORMATION
  Report Type: 
  Country: None (occurrence: None)
  Receive Date: 20070130
  Receipt Date: 20070118
  Transmission Date: 20070707
  Serious: Yes (Other)
  Sender: FDA-Public Use
  Company Number: 2006300263

PATIENT
  Age: 53 Year
  Sex: Male
  Weight: 122.4712 kg

DRUGS (10)
  1. NEOSPORIN [Suspect]
     Indication: WOUND
     Dosage: FINGER TIP AMOUNT TWICE DAILY, TOPICAL
     Route: 061
     Dates: start: 20061130, end: 20061215
  2. NEOSPORIN [Suspect]
  3. METFORMIN HCL [Concomitant]
  4. ALLOPURINOL SODIUM [Concomitant]
  5. ATENOLOL [Concomitant]
  6. GABAPENTIN [Concomitant]
  7. TRICOR [Concomitant]
  8. CENTRUM (MINERALS NOS, VITAMINS NOS) [Concomitant]
  9. B COMPLEX (NICOTINAMIDE, PYRIDOXINE HYDROCHLORIDE, RIBOFLAVIN, THIAMIN [Concomitant]
  10. CEPHALEXIN [Concomitant]

REACTIONS (5)
  - DRUG INEFFECTIVE [None]
  - EXPIRED DRUG ADMINISTERED [None]
  - PAIN IN EXTREMITY [None]
  - RASH [None]
  - THERMAL BURN [None]
